FAERS Safety Report 21731216 (Version 1)
Quarter: 2022Q4

REPORT INFORMATION
  Report Type: Spontaneous
  Country: CA (occurrence: None)
  Receive Date: 20221215
  Receipt Date: 20221215
  Transmission Date: 20230113
  Serious: Yes (Other)
  Sender: FDA-Public Use
  Company Number: CA-ROCHE-3240437

PATIENT
  Age: 39 Year
  Sex: Male
  Weight: 82 kg

DRUGS (1)
  1. HEMLIBRA [Suspect]
     Active Substance: EMICIZUMAB-KXWH
     Indication: Haemorrhage
     Route: 058

REACTIONS (5)
  - Injection site pain [Unknown]
  - Injection site rash [Unknown]
  - Injection site swelling [Unknown]
  - Rash pruritic [Unknown]
  - Type III immune complex mediated reaction [Unknown]
